FAERS Safety Report 14068577 (Version 1)
Quarter: 2017Q4

REPORT INFORMATION
  Report Type: Spontaneous
  Country: US (occurrence: None)
  Receive Date: 20171010
  Receipt Date: 20171010
  Transmission Date: 20180321
  Serious: Yes (Hospitalization)
  Sender: FDA-Public Use
  Company Number: None

PATIENT
  Age: 52 Year
  Sex: Male

DRUGS (12)
  1. EFFEXOR [Concomitant]
     Active Substance: VENLAFAXINE HYDROCHLORIDE
  2. OXYCODONE [Concomitant]
     Active Substance: OXYCODONE
  3. ZOCOR [Concomitant]
     Active Substance: SIMVASTATIN
  4. ZOLEDRONIC ACID 4 MG [Suspect]
     Active Substance: ZOLEDRONIC ACID
     Indication: RENAL CANCER
     Dosage: UTD
     Route: 042
     Dates: start: 20170925
  5. OPDIVO [Suspect]
     Active Substance: NIVOLUMAB
     Indication: RENAL CANCER
     Route: 042
     Dates: start: 20170925
  6. SIMVASTATIN. [Concomitant]
     Active Substance: SIMVASTATIN
  7. FENTANYL. [Concomitant]
     Active Substance: FENTANYL
  8. NORVASC [Concomitant]
     Active Substance: AMLODIPINE BESYLATE
  9. COZAAR [Concomitant]
     Active Substance: LOSARTAN POTASSIUM
  10. AMLODIPINE [Concomitant]
     Active Substance: AMLODIPINE BESYLATE
  11. ALBUTEROL. [Concomitant]
     Active Substance: ALBUTEROL
  12. BUPROPN [Concomitant]

REACTIONS (2)
  - Unevaluable event [None]
  - Joint dislocation [None]

NARRATIVE: CASE EVENT DATE: 2017
